FAERS Safety Report 9524966 (Version 2)
Quarter: 2013Q4

REPORT INFORMATION
  Report Type: Report from Study
  Country: JP (occurrence: JP)
  Receive Date: 20130916
  Receipt Date: 20131203
  Transmission Date: 20140711
  Serious: Yes (Other)
  Sender: FDA-Public Use
  Company Number: JP-VERTEX PHARMACEUTICALS INC-2013-009546

PATIENT
  Age: 60 Year
  Sex: Male

DRUGS (10)
  1. VX-950 (TELAPREVIR) [Suspect]
     Indication: CHRONIC HEPATITIS C
     Dosage: 1500 MG, QD
     Route: 048
     Dates: start: 20120611, end: 20120902
  2. PEGINTRON [Suspect]
     Indication: CHRONIC HEPATITIS C
     Dosage: 1.5 ?G/KG, QW
     Route: 058
     Dates: start: 20120611, end: 20121118
  3. PEGINTRON [Suspect]
     Dosage: 0.75 ?G/KG, QW
     Route: 058
     Dates: start: 20121119, end: 20121125
  4. PEGINTRON [Suspect]
     Dosage: 1.5 ?G/KG, QW
     Route: 058
     Dates: start: 20121126, end: 20121202
  5. REBETOL [Suspect]
     Indication: CHRONIC HEPATITIS C
     Dosage: 600 MG, QD
     Route: 048
     Dates: start: 20120611, end: 20120909
  6. REBETOL [Suspect]
     Dosage: 400 MG, QD
     Route: 048
     Dates: start: 20120910, end: 20121202
  7. PRAVASTAN [Concomitant]
     Dosage: 10 MG, QD
     Route: 048
  8. AMLODIPINE OD [Concomitant]
     Dosage: 5 MG, QD
     Route: 048
  9. TERBINAFINE HYDROCHLORIDE [Concomitant]
     Dosage: Q.S., PRN
     Route: 061
     Dates: start: 20120618, end: 20120903
  10. MYSLEE [Concomitant]
     Dosage: 5 MG, QD
     Route: 048
     Dates: start: 20120619, end: 20120701

REACTIONS (1)
  - Neutrophil count decreased [Recovered/Resolved]
